FAERS Safety Report 14033813 (Version 1)
Quarter: 2017Q4

REPORT INFORMATION
  Report Type: Spontaneous
  Country: US (occurrence: US)
  Receive Date: 20171003
  Receipt Date: 20171003
  Transmission Date: 20180321
  Serious: Yes (Death, Other)
  Sender: FDA-Public Use
  Company Number: US-TEVA-811118USA

PATIENT
  Sex: Female

DRUGS (3)
  1. IRINOTECAN [Suspect]
     Active Substance: IRINOTECAN
     Indication: NEUROBLASTOMA
     Route: 065
  2. IOBENGUANE (123 I) [Suspect]
     Active Substance: IOBENGUANE I-123
     Indication: NEUROBLASTOMA
     Dosage: 15MCI/KG AS TOTAL CUMULATIVE DOSE
     Route: 065
  3. VINCRISTINE [Suspect]
     Active Substance: VINCRISTINE
     Indication: NEUROBLASTOMA
     Route: 065

REACTIONS (2)
  - Myelodysplastic syndrome [Unknown]
  - Myeloid leukaemia [Fatal]
